FAERS Safety Report 10466286 (Version 1)
Quarter: 2014Q3

REPORT INFORMATION
  Report Type: Spontaneous
  Country: US (occurrence: None)
  Receive Date: 20140918
  Receipt Date: 20140918
  Transmission Date: 20150326
  Serious: Yes (Other)
  Sender: FDA-Public Use
  Company Number: 2014JUB00138

PATIENT
  Age: 37 Year
  Sex: Female

DRUGS (2)
  1. VALACYCLOVIR [Suspect]
     Active Substance: VALACYCLOVIR HYDROCHLORIDE
     Indication: HERPES ZOSTER
  2. ACYCLOVIR (ACYCLOVIR) [Suspect]
     Active Substance: ACYCLOVIR
     Indication: HERPES ZOSTER
     Route: 042

REACTIONS (6)
  - Confusional state [None]
  - Hallucination, visual [None]
  - Lethargy [None]
  - Neurotoxicity [None]
  - Paraesthesia [None]
  - Asthenia [None]
